FAERS Safety Report 19245612 (Version 1)
Quarter: 2021Q2

REPORT INFORMATION
  Report Type: Spontaneous
  Country: CA (occurrence: CA)
  Receive Date: 20210512
  Receipt Date: 20210512
  Transmission Date: 20210717
  Serious: Yes (Hospitalization, Other)
  Sender: FDA-Public Use
  Company Number: CA-SA-2017SA159833

PATIENT
  Sex: Female
  Weight: 58 kg

DRUGS (10)
  1. PLAQUENIL [Suspect]
     Active Substance: HYDROXYCHLOROQUINE SULFATE
     Indication: RHEUMATOID ARTHRITIS
     Dosage: UNK UNK,QD
     Route: 048
     Dates: start: 201704, end: 201705
  2. XELJANZ [Suspect]
     Active Substance: TOFACITINIB CITRATE
     Indication: RHEUMATOID ARTHRITIS
     Dosage: 5 MG, BID
     Route: 048
     Dates: start: 20180227
  3. ARAVA [Suspect]
     Active Substance: LEFLUNOMIDE
     Indication: RHEUMATOID ARTHRITIS
     Dosage: 10 MG,QD
     Route: 048
     Dates: start: 20170821
  4. XELJANZ [Suspect]
     Active Substance: TOFACITINIB CITRATE
     Dosage: 5 MG, BID
     Route: 048
     Dates: end: 201906
  5. LEFLUNOMIDE. [Concomitant]
     Active Substance: LEFLUNOMIDE
  6. PANTOPRAZOLE [Concomitant]
     Active Substance: PANTOPRAZOLE
  7. CALCIUM [Suspect]
     Active Substance: CALCIUM
     Dosage: UNK
  8. LEUCOVORIN [FOLINIC ACID] [Concomitant]
     Active Substance: LEUCOVORIN
     Dosage: UNK
  9. PROBIOTICS NOS [Concomitant]
     Active Substance: PROBIOTICS NOS
     Indication: IRRITABLE BOWEL SYNDROME
     Dosage: UNK
  10. RISEDRONATE [Suspect]
     Active Substance: RISEDRONATE SODIUM

REACTIONS (37)
  - Pain [Recovering/Resolving]
  - Drug intolerance [Unknown]
  - Fatigue [Not Recovered/Not Resolved]
  - Creatinine renal clearance decreased [Recovering/Resolving]
  - Anxiety [Not Recovered/Not Resolved]
  - Mouth swelling [Recovered/Resolved]
  - Abdominal pain upper [Not Recovered/Not Resolved]
  - Pruritus [Unknown]
  - Weight increased [Unknown]
  - Chest pain [Not Recovered/Not Resolved]
  - Off label use [Unknown]
  - Oropharyngeal pain [Not Recovered/Not Resolved]
  - Sinus pain [Not Recovered/Not Resolved]
  - Alopecia [Unknown]
  - Diarrhoea [Not Recovered/Not Resolved]
  - Contraindicated product administered [Unknown]
  - Infection [Not Recovered/Not Resolved]
  - Flatulence [Recovered/Resolved]
  - Gastrointestinal disorder [Unknown]
  - Condition aggravated [Not Recovered/Not Resolved]
  - Mouth ulceration [Unknown]
  - Enteritis [Recovered/Resolved]
  - Onychoclasis [Not Recovered/Not Resolved]
  - Memory impairment [Unknown]
  - Drug ineffective [Unknown]
  - Product dose omission in error [Unknown]
  - Dyspnoea [Unknown]
  - Heart rate irregular [Unknown]
  - Ageusia [Recovered/Resolved]
  - Vision blurred [Unknown]
  - Headache [Unknown]
  - Pneumonia [Recovering/Resolving]
  - Rheumatoid arthritis [Unknown]
  - Hyperchlorhydria [Unknown]
  - Dizziness [Unknown]
  - Product use issue [Unknown]
  - Intentional product misuse [Unknown]

NARRATIVE: CASE EVENT DATE: 201801
